FAERS Safety Report 8425656-8 (Version None)
Quarter: 2012Q2

REPORT INFORMATION
  Report Type: 
  Country: None (occurrence: None)
  Receive Date: 20120611
  Receipt Date: 20120604
  Transmission Date: 20120825
  Serious: Yes (Hospitalization)
  Sender: FDA-Public Use
  Company Number: PHHY2012FR048686

PATIENT
  Age: 37 Year
  Sex: Male

DRUGS (2)
  1. LAMISIL [Suspect]
     Dosage: 250 MG, QD
     Route: 048
     Dates: start: 20120315
  2. LAMISIL [Suspect]
     Dosage: 250 MG, QD
     Dates: start: 20120413, end: 20120416

REACTIONS (9)
  - OEDEMA PERIPHERAL [None]
  - BLOOD POTASSIUM DECREASED [None]
  - PALMAR-PLANTAR ERYTHRODYSAESTHESIA SYNDROME [None]
  - PURPURA [None]
  - URTICARIA [None]
  - PAIN IN EXTREMITY [None]
  - PYREXIA [None]
  - C-REACTIVE PROTEIN INCREASED [None]
  - ARTHRALGIA [None]
